FAERS Safety Report 11059420 (Version 1)
Quarter: 2015Q2

REPORT INFORMATION
  Report Type: Spontaneous
  Country: US (occurrence: None)
  Receive Date: 20150420
  Receipt Date: 20150420
  Transmission Date: 20150821
  Serious: No
  Sender: FDA-Public Use
  Company Number: AEGR001161

PATIENT
  Age: 71 Year
  Sex: Female

DRUGS (9)
  1. JUXTAPID [Suspect]
     Active Substance: LOMITAPIDE MESYLATE
     Indication: TYPE IIA HYPERLIPIDAEMIA
     Route: 048
     Dates: start: 20141201
  2. KLOR-CON (POTASSIUM CHLORIDE) [Concomitant]
  3. CARVEDILOL. [Concomitant]
     Active Substance: CARVEDILOL
  4. ALLOPURINOL. [Concomitant]
     Active Substance: ALLOPURINOL
  5. SPIRONOLACTONE. [Concomitant]
     Active Substance: SPIRONOLACTONE
  6. ASPIRIN (ACETYLSALICYLIC ACID) [Concomitant]
     Active Substance: ASPIRIN
  7. FUROSEMIDE (FUROSEMIDE SODIUM) [Concomitant]
  8. CLORTHALIDONE [Concomitant]
  9. VENTOLIN (SALBUTAMOL SULFATE) [Concomitant]

REACTIONS (2)
  - Weight decreased [None]
  - Diarrhoea [None]

NARRATIVE: CASE EVENT DATE: 20150128
